FAERS Safety Report 5139981-X (Version None)
Quarter: 2006Q4

REPORT INFORMATION
  Report Type: 
  Country: None (occurrence: None)
  Receive Date: 20061031
  Receipt Date: 20060817
  Transmission Date: 20070319
  Serious: Yes (Other)
  Sender: FDA-Public Use
  Company Number: US-BAYER-200613509BCC

PATIENT
  Age: 61 Year
  Sex: Male
  Weight: 109 kg

DRUGS (6)
  1. ALEVE [Suspect]
     Indication: PAIN
     Dosage: TOTAL DAILY DOSE: 880 MG  UNIT DOSE: 220 MG
     Route: 048
  2. ALEVE [Suspect]
     Dosage: TOTAL DAILY DOSE: 440 MG  UNIT DOSE: 220 MG
     Route: 048
  3. VIOXX [Concomitant]
  4. ASPIRIN [Concomitant]
     Dosage: AS USED: 81 MG  UNIT DOSE: 81 MG
     Dates: start: 20030101
  5. HYZAAR [Concomitant]
  6. NORVASC [Concomitant]
     Dates: start: 20031001

REACTIONS (1)
  - PROSTATE CANCER [None]
